FAERS Safety Report 17174117 (Version 2)
Quarter: 2019Q4

REPORT INFORMATION
  Report Type: Spontaneous
  Country: US (occurrence: US)
  Receive Date: 20191219
  Receipt Date: 20191227
  Transmission Date: 20200122
  Serious: Yes (Hospitalization, Other)
  Sender: FDA-Public Use
  Company Number: US-MYLANLABS-2019M1115118

PATIENT
  Sex: Male
  Weight: 92 kg

DRUGS (16)
  1. ATORVASTATIN CALCIUM. [Concomitant]
     Active Substance: ATORVASTATIN CALCIUM
     Dosage: 1 TABLET ORALLY ONCE A DAY
     Route: 048
  2. GLIPIZIDE. [Concomitant]
     Active Substance: GLIPIZIDE
     Dosage: 1TABLET ORALLY ONCE A DAY
     Route: 048
  3. OTEZLA [Concomitant]
     Active Substance: APREMILAST
     Dosage: 1 TABLET ORALLY TWICE A DAY
     Route: 048
  4. LISINOPRIL. [Concomitant]
     Active Substance: LISINOPRIL
     Dosage: 1 TABLET ORALLY ONCE A DAY
     Route: 048
  5. FUROSEMIDE. [Concomitant]
     Active Substance: FUROSEMIDE
     Dosage: 1 TABLET ORALLY ONCE A DAY
     Route: 048
  6. CITALOPRAM HYDROBROMIDE. [Concomitant]
     Active Substance: CITALOPRAM HYDROBROMIDE
     Dosage: 1 TABLET ORALLY ONCE A DAY
     Route: 048
  7. KOMBIGLYZE XR [Concomitant]
     Active Substance: METFORMIN HYDROCHLORIDE\SAXAGLIPTIN HYDROCHLORIDE
     Dosage: 1 TABLET WITH EVENING MEAL ONCE DAY
     Route: 048
  8. PANTOPRAZOLE SODIUM. [Concomitant]
     Active Substance: PANTOPRAZOLE SODIUM
     Dosage: 1 TABLET ORALLY ONCE A DAY
     Route: 048
  9. TRULICITY [Concomitant]
     Active Substance: DULAGLUTIDE
     Dosage: UNK
     Route: 058
  10. LYRICA [Concomitant]
     Active Substance: PREGABALIN
     Dosage: 1 CAPSULE ORALLY ONCE A DAY
     Route: 048
  11. FERROUS SULFATE. [Concomitant]
     Active Substance: FERROUS SULFATE
     Dosage: 1 TABLET ORALLY ONCE A DAY
     Route: 048
  12. ZYTIGA [Concomitant]
     Active Substance: ABIRATERONE ACETATE
     Dosage: EMPTY STOMACH ORALLY ONCE A DAY
     Route: 048
  13. FULPHILA [Suspect]
     Active Substance: PEGFILGRASTIM-JMDB
     Indication: PROSTATE CANCER
     Dosage: UNK, ONCE
  14. PREDNISONE. [Concomitant]
     Active Substance: PREDNISONE
     Dosage: 1 TABLET ORALLY ONCE A DAY
     Route: 048
  15. LUPRON [Concomitant]
     Active Substance: LEUPROLIDE ACETATE
     Dosage: UNK
  16. CALCIUM 600 + D [Concomitant]
     Active Substance: CALCIUM\VITAMIN D
     Dosage: 1 TABLET WITH MEAL ONCE DAY
     Route: 048

REACTIONS (6)
  - Decreased appetite [Unknown]
  - Erythema [Unknown]
  - Adverse event [Unknown]
  - Pollakiuria [Unknown]
  - Rash vesicular [Unknown]
  - Vasculitis [Unknown]
